FAERS Safety Report 5149886-6 (Version None)
Quarter: 2006Q4

REPORT INFORMATION
  Report Type: 
  Country: None (occurrence: None)
  Receive Date: 20061113
  Receipt Date: 20061108
  Transmission Date: 20070319
  Serious: Yes (Other)
  Sender: FDA-Public Use
  Company Number: BR-BRISTOL-MYERS SQUIBB COMPANY-13573761

PATIENT
  Age: 52 Year
  Sex: Female
  Weight: 58 kg

DRUGS (6)
  1. PARAPLATIN [Suspect]
     Route: 042
     Dates: start: 20061107, end: 20061107
  2. TAXOL [Concomitant]
  3. DECADRON [Concomitant]
     Indication: PREMEDICATION
  4. KYTRIL [Concomitant]
     Indication: PREMEDICATION
  5. BENADRYL [Concomitant]
     Indication: PREMEDICATION
  6. ANTAK [Concomitant]
     Indication: PREMEDICATION

REACTIONS (6)
  - ANORECTAL DISORDER [None]
  - CYANOSIS [None]
  - LOSS OF CONSCIOUSNESS [None]
  - PALLOR [None]
  - PSYCHOMOTOR HYPERACTIVITY [None]
  - RESPIRATORY DISORDER [None]
